FAERS Safety Report 10590102 (Version 1)
Quarter: 2014Q4

REPORT INFORMATION
  Report Type: Spontaneous
  Country: US (occurrence: None)
  Receive Date: 20141117
  Receipt Date: 20141117
  Transmission Date: 20150529
  Serious: Yes (Other)
  Sender: FDA-Public Use
  Company Number: None

PATIENT
  Age: 75 Year
  Sex: Male
  Weight: 75 kg

DRUGS (15)
  1. GAVISCON [Concomitant]
     Active Substance: ALUMINUM HYDROXIDE\MAGNESIUM CARBONATE
  2. LACTOBACILLUS ACIDOPHILUS (PROBIOTIC ORAL) [Concomitant]
  3. ELIGLUSTAT. [Suspect]
     Active Substance: ELIGLUSTAT
     Indication: GAUCHER^S DISEASE
     Route: 048
     Dates: start: 20141110, end: 20141111
  4. ALUMINUM HYDROXIDE-MAGNESIUM TRISILICATE [Concomitant]
     Active Substance: ALUMINUM HYDROXIDE\MAGNESIUM TRISILICATE
  5. CHOLECALCIFEROL (VITAMIN D3) [Concomitant]
  6. ATORVASTATIN CALCIUM (LIPITOR ORAL) [Concomitant]
  7. ASPIRIN. [Concomitant]
     Active Substance: ASPIRIN
  8. DIGESTIVE ENZYMES CAP [Concomitant]
  9. RANITIDINE (ZANTAC) [Concomitant]
  10. GLIPIZIDE (GLUCOTROL) [Concomitant]
  11. VELAGLUCERASE ALFA IV INJECT [Concomitant]
  12. METFORMIN (GLUCOPHAGE) [Concomitant]
  13. MULTIVITAMIN WITH MINERALS [Concomitant]
     Active Substance: MINERALS\VITAMINS
  14. POLYETHYLENE GLYCOL (MIRALAX) [Concomitant]
  15. TYLENOL [Concomitant]
     Active Substance: ACETAMINOPHEN

REACTIONS (8)
  - Headache [None]
  - Blood pressure increased [None]
  - Pain in jaw [None]
  - Toothache [None]
  - Dizziness [None]
  - Dyspepsia [None]
  - Nausea [None]
  - Blood glucose increased [None]

NARRATIVE: CASE EVENT DATE: 20141110
